FAERS Safety Report 11868243 (Version 1)
Quarter: 2015Q4

REPORT INFORMATION
  Report Type: Spontaneous
  Country: GB (occurrence: GB)
  Receive Date: 20151224
  Receipt Date: 20151224
  Transmission Date: 20160305
  Serious: Yes (Other)
  Sender: FDA-Public Use
  Company Number: GB-ACTAVIS-2015-28140

PATIENT
  Age: 60 Year
  Sex: Female
  Weight: 60 kg

DRUGS (4)
  1. LISINOPRIL. [Concomitant]
     Active Substance: LISINOPRIL
     Indication: PRODUCT USED FOR UNKNOWN INDICATION
     Dosage: 1 DF, DAILY
     Route: 065
     Dates: start: 20150903
  2. BENDROFLUMETHIAZIDE [Concomitant]
     Active Substance: BENDROFLUMETHIAZIDE
     Indication: PRODUCT USED FOR UNKNOWN INDICATION
     Dosage: 1 DF, DAILY
     Route: 065
     Dates: start: 20150903
  3. WARFARIN SODIUM. [Concomitant]
     Active Substance: WARFARIN SODIUM
     Indication: PRODUCT USED FOR UNKNOWN INDICATION
     Dosage: 1 DF, UNK; TAKE ONE TABLET AS DIRECTED BY HOSPITAL
     Route: 048
     Dates: start: 20150903
  4. SALBUTAMOL (UNKNOWN) [Suspect]
     Active Substance: ALBUTEROL
     Indication: PRODUCT USED FOR UNKNOWN INDICATION
     Dosage: UNK
     Route: 065
     Dates: start: 20151209

REACTIONS (4)
  - Bronchospasm paradoxical [Recovered/Resolved]
  - Dyspnoea [Unknown]
  - Oropharyngeal pain [Unknown]
  - Throat tightness [Unknown]

NARRATIVE: CASE EVENT DATE: 20151209
